FAERS Safety Report 15061003 (Version 1)
Quarter: 2018Q2

REPORT INFORMATION
  Report Type: Spontaneous
  Country: US (occurrence: US)
  Receive Date: 20180625
  Receipt Date: 20180625
  Transmission Date: 20180711
  Serious: No
  Sender: FDA-Public Use
  Company Number: US-ROCHE-2106799

PATIENT
  Sex: Female
  Weight: 69.64 kg

DRUGS (3)
  1. KLONOPIN [Suspect]
     Active Substance: CLONAZEPAM
     Indication: SEIZURE
     Dosage: AS NEEDED
     Route: 048
     Dates: start: 1996, end: 2007
  2. KLONOPIN [Suspect]
     Active Substance: CLONAZEPAM
     Dosage: AS NEEDED
     Route: 048
     Dates: start: 2001
  3. CLONAZEPAM. [Concomitant]
     Active Substance: CLONAZEPAM
     Indication: SEIZURE
     Dosage: ONGOING: UNKNOWN
     Route: 048
     Dates: start: 2010

REACTIONS (2)
  - No adverse event [Unknown]
  - Pregnancy [Unknown]

NARRATIVE: CASE EVENT DATE: 2004
